FAERS Safety Report 11766860 (Version 1)
Quarter: 2015Q4

REPORT INFORMATION
  Report Type: Report from Study
  Country: DE (occurrence: DE)
  Receive Date: 20151123
  Receipt Date: 20151123
  Transmission Date: 20160304
  Serious: Yes (Other)
  Sender: FDA-Public Use
  Company Number: DE-ROCHE-1621880

PATIENT
  Age: 71 Year
  Sex: Male

DRUGS (5)
  1. VEMURAFENIB [Suspect]
     Active Substance: VEMURAFENIB
     Indication: MALIGNANT MELANOMA
     Route: 065
     Dates: start: 20150623, end: 20150813
  2. NOVALGIN [Concomitant]
     Active Substance: METAMIZOLE SODIUM
  3. INTERFERON ALFA-2B [Concomitant]
     Active Substance: INTERFERON ALFA-2B
     Route: 065
     Dates: start: 20140307
  4. PREGABALIN. [Concomitant]
     Active Substance: PREGABALIN
  5. COBIMETINIB [Suspect]
     Active Substance: COBIMETINIB
     Indication: MALIGNANT MELANOMA
     Route: 065
     Dates: start: 20150701, end: 20150823

REACTIONS (3)
  - Diarrhoea [Recovered/Resolved]
  - Electrocardiogram QT prolonged [Recovered/Resolved]
  - Solar dermatitis [Recovered/Resolved]

NARRATIVE: CASE EVENT DATE: 20150710
